FAERS Safety Report 23830473 (Version 3)
Quarter: 2024Q2

REPORT INFORMATION
  Report Type: Spontaneous
  Country: PH (occurrence: PH)
  Receive Date: 20240508
  Receipt Date: 20240530
  Transmission Date: 20240716
  Serious: Yes (Death, Other)
  Sender: FDA-Public Use
  Company Number: PH-BoehringerIngelheim-2024-BI-026372

PATIENT
  Age: 34 Year
  Sex: Female

DRUGS (1)
  1. GLYXAMBI [Suspect]
     Active Substance: EMPAGLIFLOZIN\LINAGLIPTIN
     Indication: Type 2 diabetes mellitus
     Dosage: 25/5 MG. START AND END DATE OF ADMINISTRATION: AROUND LATE MARCH, REPORTER CANNOT RECALL EXACT DATE
     Dates: start: 202403, end: 202403

REACTIONS (3)
  - Diabetic nephropathy [Fatal]
  - Diabetic ketoacidosis [Fatal]
  - Dyspnoea [Unknown]

NARRATIVE: CASE EVENT DATE: 20240301
